FAERS Safety Report 20462660 (Version 6)
Quarter: 2024Q1

REPORT INFORMATION
  Report Type: Spontaneous
  Country: JP (occurrence: JP)
  Receive Date: 20220211
  Receipt Date: 20240311
  Transmission Date: 20240410
  Serious: Yes (Life-Threatening, Hospitalization, Other)
  Sender: FDA-Public Use
  Company Number: JP-MSD-M2022-04570

PATIENT
  Age: 4 Decade
  Sex: Female

DRUGS (3)
  1. KEYTRUDA [Suspect]
     Active Substance: PEMBROLIZUMAB
     Indication: Endometrial cancer
     Dosage: 200 MILLIGRAM, Q3W
     Route: 041
     Dates: start: 20220119, end: 20220119
  2. KEYTRUDA [Suspect]
     Active Substance: PEMBROLIZUMAB
     Dosage: 200 MILLIGRAM, Q3W
     Route: 041
     Dates: start: 2022
  3. LENVIMA [Suspect]
     Active Substance: LENVATINIB
     Indication: Endometrial cancer
     Dosage: 20 MILLIGRAM, QD
     Route: 048
     Dates: start: 20220117, end: 20220204

REACTIONS (11)
  - Multiple organ dysfunction syndrome [Recovering/Resolving]
  - Cytokine storm [Recovering/Resolving]
  - Septic shock [Recovering/Resolving]
  - Platelet count decreased [Recovering/Resolving]
  - Immune-mediated renal disorder [Recovering/Resolving]
  - Immune-mediated hepatic disorder [Recovering/Resolving]
  - Pyrexia [Recovering/Resolving]
  - Malignant neoplasm progression [Unknown]
  - Infection [Recovering/Resolving]
  - C-reactive protein increased [Recovering/Resolving]
  - White blood cell count decreased [Recovering/Resolving]

NARRATIVE: CASE EVENT DATE: 20220101
